FAERS Safety Report 16057275 (Version 1)
Quarter: 2019Q1

REPORT INFORMATION
  Report Type: Spontaneous
  Country: US (occurrence: US)
  Receive Date: 20190311
  Receipt Date: 20190311
  Transmission Date: 20190418
  Serious: No
  Sender: FDA-Public Use
  Company Number: US-PFIZER INC-2019096275

PATIENT
  Age: 51 Year
  Sex: Male
  Weight: 72.57 kg

DRUGS (1)
  1. LYRICA [Suspect]
     Active Substance: PREGABALIN
     Dosage: 300 MG, 2X/DAY
     Route: 048

REACTIONS (4)
  - Malaise [Unknown]
  - Vomiting [Unknown]
  - Hyperhidrosis [Unknown]
  - Withdrawal syndrome [Unknown]
